FAERS Safety Report 6782812-2 (Version None)
Quarter: 2010Q2

REPORT INFORMATION
  Report Type: 
  Country: None (occurrence: None)
  Receive Date: 20100616
  Receipt Date: 20100602
  Transmission Date: 20101027
  Serious: Yes (Other)
  Sender: FDA-Public Use
  Company Number: 1000011550

PATIENT
  Sex: Male

DRUGS (6)
  1. ESCITALOPRAM [Suspect]
     Indication: DEPRESSION
     Dosage: 20 MG (20 MG, 1 IN 1 D), ORAL; 15 MG (15 MG, 1 IN 1 D), ORAL; 10 MG (10 MG, 1 IN 1 D), ORAL
     Route: 048
     Dates: start: 20090601
  2. LORMETAZEPAM (TABLETS) [Concomitant]
  3. ACECLOFENAC [Concomitant]
  4. ZALDIAR [Concomitant]
  5. ADOLONTA (TABLETS) [Concomitant]
  6. PARACETAMOL [Concomitant]

REACTIONS (7)
  - AMNESIA [None]
  - DISTURBANCE IN ATTENTION [None]
  - FATIGUE [None]
  - HEADACHE [None]
  - HYPERHIDROSIS [None]
  - NERVOUSNESS [None]
  - SLEEP DISORDER [None]
